FAERS Safety Report 5068564-5 (Version None)
Quarter: 2006Q3

REPORT INFORMATION
  Report Type: 
  Country: None (occurrence: None)
  Receive Date: 20060802
  Receipt Date: 20051201
  Transmission Date: 20061208
  Serious: No
  Sender: FDA-Public Use
  Company Number: US-BRISTOL-MYERS SQUIBB COMPANY-13201520

PATIENT
  Age: 83 Year
  Sex: Female
  Weight: 91 kg

DRUGS (6)
  1. COUMADIN [Suspect]
     Indication: ATRIAL FIBRILLATION
     Dosage: DURATION: 4 YEARS, DOSE INCREASED TO 4 MG DAILY
  2. CARDIZEM [Concomitant]
  3. ASACOL [Concomitant]
  4. SYNTHROID [Concomitant]
  5. LANOXIN [Concomitant]
  6. SINGULAIR [Concomitant]

REACTIONS (1)
  - INTERNATIONAL NORMALISED RATIO INCREASED [None]
